FAERS Safety Report 6236380-4 (Version None)
Quarter: 2009Q2

REPORT INFORMATION
  Report Type: 
  Country: None (occurrence: None)
  Receive Date: 20090619
  Receipt Date: 20090617
  Transmission Date: 20091009
  Serious: Yes (Death)
  Sender: FDA-Public Use
  Company Number: KR-ASTRAZENECA-2009SE02867

PATIENT
  Age: 23246 Day
  Sex: Male
  Weight: 57 kg

DRUGS (1)
  1. IRESSA [Suspect]
     Indication: NON-SMALL CELL LUNG CANCER
     Route: 048
     Dates: start: 20050711

REACTIONS (2)
  - CARDIAC FAILURE [None]
  - PNEUMONIA [None]
